FAERS Safety Report 7438671-8 (Version None)
Quarter: 2011Q2

REPORT INFORMATION
  Report Type: 
  Country: None (occurrence: None)
  Receive Date: 20110426
  Receipt Date: 20110419
  Transmission Date: 20111010
  Serious: Yes (Death, Other)
  Sender: FDA-Public Use
  Company Number: US-CELGENEUS-163-21880-11042594

PATIENT
  Age: 85 Year
  Sex: Male

DRUGS (16)
  1. MELPHALAN [Concomitant]
     Indication: MULTIPLE MYELOMA
     Route: 065
     Dates: start: 20091101, end: 20100101
  2. MELPHALAN [Concomitant]
     Route: 065
     Dates: start: 20101001, end: 20101101
  3. DEXAMETHASONE [Concomitant]
     Indication: MULTIPLE MYELOMA
     Route: 065
     Dates: start: 20100601, end: 20100901
  4. OXYCODONE [Concomitant]
     Route: 065
  5. DOCUSATE [Concomitant]
     Route: 065
  6. APAP TAB [Concomitant]
     Route: 065
  7. LORAZEPAM [Concomitant]
     Route: 065
  8. DEXAMETHASONE [Concomitant]
     Route: 065
     Dates: start: 20101001, end: 20101101
  9. REVLIMID [Suspect]
     Dosage: 10 MILLIGRAM
     Route: 048
     Dates: start: 20100601
  10. REVLIMID [Suspect]
     Dosage: 5 MILLIGRAM
     Route: 048
     Dates: start: 20101001, end: 20101101
  11. MORPHINE [Concomitant]
     Route: 065
  12. SENNA [Concomitant]
     Route: 065
  13. PROCHLORPERAZINE TAB [Concomitant]
     Route: 065
  14. HYOSCYAMINE [Concomitant]
     Route: 065
  15. REVLIMID [Suspect]
     Indication: MULTIPLE MYELOMA
     Dosage: 10 MILLIGRAM
     Route: 048
     Dates: start: 20100201
  16. REVLIMID [Suspect]
     Dosage: 5 MILLIGRAM
     Route: 048
     Dates: start: 20100801, end: 20100901

REACTIONS (5)
  - PERFORMANCE STATUS DECREASED [None]
  - FATIGUE [None]
  - PANCYTOPENIA [None]
  - BONE MARROW FAILURE [None]
  - MULTIPLE MYELOMA [None]
